FAERS Safety Report 5418660-5 (Version None)
Quarter: 2007Q3

REPORT INFORMATION
  Report Type: 
  Country: None (occurrence: None)
  Receive Date: 20070817
  Receipt Date: 20070807
  Transmission Date: 20080115
  Serious: Yes (Other)
  Sender: FDA-Public Use
  Company Number: US-PFIZER INC-2007065753

PATIENT
  Sex: Female

DRUGS (2)
  1. LIPITOR [Suspect]
  2. CRESTOR [Suspect]
     Indication: BLOOD CHOLESTEROL

REACTIONS (1)
  - GAIT DISTURBANCE [None]
